FAERS Safety Report 7473183-7 (Version None)
Quarter: 2011Q2

REPORT INFORMATION
  Report Type: 
  Country: None (occurrence: None)
  Receive Date: 20110511
  Receipt Date: 20110509
  Transmission Date: 20111010
  Serious: Yes (Hospitalization)
  Sender: FDA-Public Use
  Company Number: A0899115A

PATIENT
  Age: 63 Year
  Sex: Female

DRUGS (2)
  1. AVANDAMET [Suspect]
     Route: 048
     Dates: start: 20031107, end: 20041201
  2. AVANDIA [Suspect]
     Route: 048
     Dates: start: 20050101, end: 20081101

REACTIONS (3)
  - STENT PLACEMENT [None]
  - MYOCARDIAL INFARCTION [None]
  - OBSTRUCTION [None]
